FAERS Safety Report 12821858 (Version 1)
Quarter: 2016Q4

REPORT INFORMATION
  Report Type: Report from Study
  Country: US (occurrence: US)
  Receive Date: 20161006
  Receipt Date: 20161006
  Transmission Date: 20170207
  Serious: No
  Sender: FDA-Public Use
  Company Number: US-AMGEN-USASL2016029752

PATIENT
  Age: 63 Year
  Sex: Female
  Weight: 73.4 kg

DRUGS (1)
  1. PROLIA [Suspect]
     Active Substance: DENOSUMAB
     Indication: PRODUCT USED FOR UNKNOWN INDICATION
     Dosage: 60 MG, Q6MO
     Route: 058
     Dates: start: 20150619

REACTIONS (2)
  - Blood calcium increased [Unknown]
  - Hyperparathyroidism [Unknown]

NARRATIVE: CASE EVENT DATE: 20160127
